FAERS Safety Report 4685758-9 (Version None)
Quarter: 2005Q2

REPORT INFORMATION
  Report Type: 
  Country: None (occurrence: None)
  Receive Date: 20050608
  Receipt Date: 20050527
  Transmission Date: 20051028
  Serious: Yes (Hospitalization)
  Sender: FDA-Public Use
  Company Number: KII-2005-0016794

PATIENT
  Age: 46 Year
  Sex: Female

DRUGS (5)
  1. MORPHINE SULFATE [Suspect]
     Dosage: ORAL
     Route: 048
  2. OXYCODONE AND ASPIRIN(OXYCODONE TEREPETHALATE) [Suspect]
     Dosage: ORAL
  3. ACETAMINOPHEN AND HYDROCODONE BITARTRATE [Suspect]
     Dosage: ORAL
     Route: 048
  4. CYCLOBENZAPRINE HCL [Suspect]
     Dosage: ORAL
     Route: 048
  5. AMITRIPTYLINE HCL [Suspect]
     Dosage: ORAL
     Route: 048

REACTIONS (3)
  - INCORRECT DOSE ADMINISTERED [None]
  - LETHARGY [None]
  - SOMNOLENCE [None]
